FAERS Safety Report 4624025-6 (Version None)
Quarter: 2005Q1

REPORT INFORMATION
  Report Type: 
  Country: None (occurrence: None)
  Receive Date: 20050331
  Receipt Date: 20050215
  Transmission Date: 20050727
  Serious: Yes (Other)
  Sender: FDA-Public Use
  Company Number: PHBS2005DE02352

PATIENT
  Age: 27 Year
  Sex: Male

DRUGS (5)
  1. CLOZAPINE [Suspect]
     Indication: SCHIZOPHRENIA
     Dosage: 250 MG/D
     Route: 065
  2. LORAZEPAM [Suspect]
     Dosage: 1 MG/D
     Route: 065
  3. HALOPERIDOL [Suspect]
  4. ZOTEPINE [Suspect]
  5. RISPERIDONE [Suspect]
     Dosage: 6 MG/D
     Route: 065

REACTIONS (7)
  - ASTHENIA [None]
  - DISTURBANCE IN ATTENTION [None]
  - FATIGUE [None]
  - INCREASED APPETITE [None]
  - LIBIDO DECREASED [None]
  - SALIVARY HYPERSECRETION [None]
  - WEIGHT INCREASED [None]
